FAERS Safety Report 23894509 (Version 1)
Quarter: 2024Q2

REPORT INFORMATION
  Report Type: Spontaneous
  Country: US (occurrence: US)
  Receive Date: 20240524
  Receipt Date: 20240524
  Transmission Date: 20240716
  Serious: No
  Sender: FDA-Public Use
  Company Number: US-SUN PHARMACEUTICAL INDUSTRIES LTD-2023R1-421023

PATIENT
  Age: 71 Year
  Sex: Female

DRUGS (2)
  1. MORPHINE [Suspect]
     Active Substance: MORPHINE
     Indication: Product used for unknown indication
     Dosage: UNK
     Route: 065
  2. LENVIMA [Concomitant]
     Active Substance: LENVATINIB
     Indication: Thyroid cancer
     Dosage: 14 MILLIGRAM
     Route: 048
     Dates: start: 20231010

REACTIONS (5)
  - Stomatitis [Unknown]
  - Dry mouth [Unknown]
  - Flank pain [Unknown]
  - Confusional state [Unknown]
  - Oxygen saturation decreased [Unknown]
